FAERS Safety Report 19521145 (Version 1)
Quarter: 2021Q3

REPORT INFORMATION
  Report Type: Spontaneous
  Country: DE (occurrence: DE)
  Receive Date: 20210712
  Receipt Date: 20210712
  Transmission Date: 20211014
  Serious: Yes (Other)
  Sender: FDA-Public Use
  Company Number: DE-HISUN PHARMACEUTICALS-2113717

PATIENT
  Age: 44 Year
  Sex: Female

DRUGS (3)
  1. FAMPRIDINE [Concomitant]
     Active Substance: DALFAMPRIDINE
  2. CLADRIBINE. [Suspect]
     Active Substance: CLADRIBINE
     Indication: RELAPSING MULTIPLE SCLEROSIS
  3. AMLODIPINE [Concomitant]
     Active Substance: AMLODIPINE BESYLATE

REACTIONS (3)
  - Glomerulonephritis [Unknown]
  - Fatigue [Unknown]
  - Folliculitis [Unknown]
